FAERS Safety Report 4876123-X (Version None)
Quarter: 2006Q1

REPORT INFORMATION
  Report Type: 
  Country: None (occurrence: None)
  Receive Date: 20060106
  Receipt Date: 20060106
  Transmission Date: 20060701
  Serious: Yes (Death)
  Sender: FDA-Public Use
  Company Number: None

PATIENT
  Age: 55 Year
  Sex: Female
  Weight: 98.7027 kg

DRUGS (2)
  1. DURAGESIC-100 [Suspect]
  2. COPAXONE [Suspect]

REACTIONS (1)
  - PNEUMONIA [None]
